FAERS Safety Report 8922058 (Version 1)
Quarter: 2012Q4

REPORT INFORMATION
  Report Type: Spontaneous
  Country: US (occurrence: None)
  Receive Date: 20121120
  Receipt Date: 20121120
  Transmission Date: 20130627
  Serious: Yes (Other)
  Sender: FDA-Public Use
  Company Number: None

PATIENT
  Age: 37 Year
  Sex: Female

DRUGS (1)
  1. AVONEX 30MCG IM Q WEEK PT CURRENTLY O N 3/4TH DOSE IN THE 3 WEEK TITRAT BIOGEN IDEC [Suspect]
     Indication: MULTIPLE SCLEROSIS
     Dosage: 3/4th dose in titration weekly IM
     Route: 030
     Dates: start: 20121016

REACTIONS (7)
  - Gait disturbance [None]
  - White blood cell count increased [None]
  - Blood potassium decreased [None]
  - Heart rate increased [None]
  - Scab [None]
  - Pyrexia [None]
  - Tremor [None]
